FAERS Safety Report 12183116 (Version 1)
Quarter: 2016Q1

REPORT INFORMATION
  Report Type: Spontaneous
  Country: US (occurrence: US)
  Receive Date: 20160316
  Receipt Date: 20160316
  Transmission Date: 20160526
  Serious: No
  Sender: FDA-Public Use
  Company Number: US-B.I. PHARMACEUTICALS,INC./RIDGEFIELD-2016-BI-08107BP

PATIENT
  Age: 77 Year
  Sex: Male
  Weight: 95.25 kg

DRUGS (2)
  1. ZANTAC [Suspect]
     Active Substance: RANITIDINE HYDROCHLORIDE
     Indication: FLATULENCE
     Route: 048
     Dates: start: 20160207
  2. ZANTAC [Suspect]
     Active Substance: RANITIDINE HYDROCHLORIDE
     Dosage: 2 ANZ
     Route: 048
     Dates: start: 20160207, end: 20160207

REACTIONS (2)
  - Off label use [Unknown]
  - Inappropriate schedule of drug administration [Recovered/Resolved]

NARRATIVE: CASE EVENT DATE: 20160207
